FAERS Safety Report 10284233 (Version 2)
Quarter: 2014Q3

REPORT INFORMATION
  Report Type: Spontaneous
  Country: US (occurrence: US)
  Receive Date: 20140708
  Receipt Date: 20140820
  Transmission Date: 20150326
  Serious: Yes (Hospitalization)
  Sender: FDA-Public Use
  Company Number: US-BAYER-2014-101244

PATIENT
  Age: 46 Year
  Sex: Female
  Weight: 75.74 kg

DRUGS (3)
  1. OXYCODONE [Concomitant]
     Active Substance: OXYCODONE
     Indication: SPINAL OSTEOARTHRITIS
     Dosage: 30 MG, TID; CHRONIC MEDICATION
  2. MIRENA [Suspect]
     Active Substance: LEVONORGESTREL
     Indication: CONTRACEPTION
     Dosage: 20 MCG/24HR, CONT
     Route: 015
     Dates: start: 20130917, end: 20140630
  3. VALIUM [Concomitant]
     Active Substance: DIAZEPAM
     Indication: SPINAL OSTEOARTHRITIS
     Dosage: 5 MG, TID, CHRONIC MEDICATION

REACTIONS (1)
  - Deep vein thrombosis [Recovered/Resolved]

NARRATIVE: CASE EVENT DATE: 20140624
